FAERS Safety Report 4647800-0 (Version None)
Quarter: 2005Q2

REPORT INFORMATION
  Report Type: 
  Country: None (occurrence: None)
  Receive Date: 20050426
  Receipt Date: 20050414
  Transmission Date: 20051028
  Serious: Yes (Life-Threatening, Congenital Anomaly)
  Sender: FDA-Public Use
  Company Number: 04P-056-0260140-00

PATIENT
  Age: 1 Day
  Sex: Female
  Weight: 2.33 kg

DRUGS (1)
  1. DEPAKOTE [Suspect]

REACTIONS (7)
  - CAESAREAN SECTION [None]
  - DRUG EXPOSURE DURING PREGNANCY [None]
  - FINGER HYPOPLASIA [None]
  - FOETAL GROWTH RETARDATION [None]
  - HEART DISEASE CONGENITAL [None]
  - PELVIC KIDNEY [None]
  - SINGLE UMBILICAL ARTERY [None]
